FAERS Safety Report 4415280-6 (Version None)
Quarter: 2004Q3

REPORT INFORMATION
  Report Type: 
  Country: None (occurrence: None)
  Receive Date: 20040730
  Receipt Date: 20021011
  Transmission Date: 20050211
  Serious: Yes (Death)
  Sender: FDA-Public Use
  Company Number: 2002UW13833

PATIENT
  Sex: Male

DRUGS (2)
  1. PROVERA [Suspect]
     Indication: PSYCHOTIC DISORDER
     Dosage: 200 MG PO
     Route: 048
  2. METHADONE HCL [Suspect]
     Dosage: 30 MG DAILY

REACTIONS (2)
  - COMA [None]
  - DRUG INTERACTION [None]
